FAERS Safety Report 13271108 (Version 1)
Quarter: 2017Q1

REPORT INFORMATION
  Report Type: Spontaneous
  Country: US (occurrence: US)
  Receive Date: 20170226
  Receipt Date: 20170226
  Transmission Date: 20170428
  Serious: Yes (Other)
  Sender: FDA-Public Use
  Company Number: US-TEVA-742429USA

PATIENT
  Sex: Female

DRUGS (1)
  1. ENOXAPARIN [Suspect]
     Active Substance: ENOXAPARIN
     Indication: DEEP VEIN THROMBOSIS
     Dosage: 60 MG/0.6 ML
     Dates: start: 20170213

REACTIONS (5)
  - Dizziness [Unknown]
  - Condition aggravated [Unknown]
  - Night sweats [Unknown]
  - Presyncope [Unknown]
  - Chills [Unknown]

NARRATIVE: CASE EVENT DATE: 20170213
